FAERS Safety Report 5752955-0 (Version None)
Quarter: 2008Q2

REPORT INFORMATION
  Report Type: 
  Country: None (occurrence: None)
  Receive Date: 20080527
  Receipt Date: 20080508
  Transmission Date: 20081010
  Serious: No
  Sender: FDA-Public Use
  Company Number: S08-CAN-00941-01

PATIENT
  Age: 41 Year
  Sex: Female

DRUGS (2)
  1. CELEXA [Suspect]
     Indication: ANXIETY
     Dosage: 20 MG QD PO
     Route: 048
     Dates: start: 20071204, end: 20071208
  2. CELEXA [Suspect]
     Indication: DEPRESSION
     Dosage: 20 MG QD PO
     Route: 048
     Dates: start: 20071204, end: 20071208

REACTIONS (5)
  - ABDOMINAL DISCOMFORT [None]
  - CHEST DISCOMFORT [None]
  - NAUSEA [None]
  - PAIN [None]
  - TREMOR [None]
